FAERS Safety Report 9315179 (Version 1)
Quarter: 2013Q2

REPORT INFORMATION
  Report Type: Spontaneous
  Country: CA (occurrence: CA)
  Receive Date: 20130529
  Receipt Date: 20130529
  Transmission Date: 20140414
  Serious: Yes (Disabling)
  Sender: FDA-Public Use
  Company Number: CA-TEVA-408337USA

PATIENT
  Age: 47 Year
  Sex: Female

DRUGS (4)
  1. CIPROFLOXACIN [Suspect]
     Dosage: 1000 MILLIGRAM DAILY;
     Route: 048
  2. LEVOFLOXACIN [Suspect]
     Dosage: 500 MILLIGRAM DAILY;
     Route: 048
  3. OXYCONTIN [Concomitant]
     Dosage: EXTENDED RELEASED
  4. TYLENOL WITH CODEINE NO. 3-TAB [Concomitant]

REACTIONS (32)
  - Abdominal pain [Recovering/Resolving]
  - Arthritis [Recovering/Resolving]
  - Blood pressure decreased [Recovering/Resolving]
  - Bursitis [Recovering/Resolving]
  - Costochondritis [Recovering/Resolving]
  - Dizziness [Recovering/Resolving]
  - Dysphagia [Recovering/Resolving]
  - Dysphonia [Recovering/Resolving]
  - Dyspnoea [Recovering/Resolving]
  - Extraocular muscle disorder [Recovering/Resolving]
  - Fatigue [Recovering/Resolving]
  - Gastrooesophageal reflux disease [Recovering/Resolving]
  - Glucose tolerance impaired [Recovering/Resolving]
  - Heart rate irregular [Recovering/Resolving]
  - Illusion [Recovering/Resolving]
  - Joint crepitation [Recovering/Resolving]
  - Lymph node pain [Recovering/Resolving]
  - Meniscus injury [Recovering/Resolving]
  - Muscle twitching [Recovering/Resolving]
  - Muscular weakness [Recovering/Resolving]
  - Myalgia [Recovering/Resolving]
  - Oedema peripheral [Recovering/Resolving]
  - Oropharyngeal pain [Recovering/Resolving]
  - Pelvic pain [Recovering/Resolving]
  - Photophobia [Recovering/Resolving]
  - Photosensitivity reaction [Recovering/Resolving]
  - Pollakiuria [Recovering/Resolving]
  - Synovial cyst [Recovering/Resolving]
  - Tendon rupture [Recovering/Resolving]
  - Tinnitus [Recovering/Resolving]
  - Tremor [Recovering/Resolving]
  - Vein disorder [Recovering/Resolving]
